FAERS Safety Report 7602918-5 (Version None)
Quarter: 2011Q2

REPORT INFORMATION
  Report Type: 
  Country: None (occurrence: None)
  Receive Date: 20110630
  Receipt Date: 20110621
  Transmission Date: 20111010
  Serious: Yes (Hospitalization)
  Sender: FDA-Public Use
  Company Number: 201106050

PATIENT
  Sex: Female

DRUGS (1)
  1. XIAFLEX [Suspect]
     Indication: PRODUCT USED FOR UNKNOWN INDICATION
     Dosage: INTRALESIONAL
     Route: 026
     Dates: start: 20110620

REACTIONS (1)
  - HYPERTENSIVE CRISIS [None]
